FAERS Safety Report 18299323 (Version 1)
Quarter: 2020Q3

REPORT INFORMATION
  Report Type: Report from Study
  Country: PE (occurrence: PE)
  Receive Date: 20200922
  Receipt Date: 20200922
  Transmission Date: 20201103
  Serious: Yes (Other)
  Sender: FDA-Public Use
  Company Number: PE-SEATTLE GENETICS-2020SGN04192

PATIENT
  Sex: Female
  Weight: 53 kg

DRUGS (1)
  1. BRENTUXIMAB VEDOTIN?MPI [Suspect]
     Active Substance: BRENTUXIMAB VEDOTIN
     Indication: HODGKIN^S DISEASE
     Dosage: 100 MG
     Route: 042
     Dates: start: 20190711

REACTIONS (5)
  - Chills [Unknown]
  - Coronavirus infection [Unknown]
  - Ageusia [Unknown]
  - Headache [Unknown]
  - Anosmia [Unknown]
